FAERS Safety Report 9614137 (Version 1)
Quarter: 2013Q4

REPORT INFORMATION
  Report Type: Spontaneous
  Country: US (occurrence: US)
  Receive Date: 20131011
  Receipt Date: 20131011
  Transmission Date: 20140711
  Serious: Yes (Other)
  Sender: FDA-Public Use
  Company Number: US-BIOGENIDEC-2013BI097833

PATIENT
  Sex: Female

DRUGS (14)
  1. AVONEX [Suspect]
     Indication: MULTIPLE SCLEROSIS
     Route: 030
     Dates: start: 201202
  2. AMPYRA [Concomitant]
     Dates: start: 20111005
  3. BACLOFEN [Concomitant]
     Dates: start: 20130905
  4. HYDROCODONE ACETAMINOPHEN [Concomitant]
     Dates: start: 20130903
  5. MONTELUKAST [Concomitant]
     Dates: start: 20130717
  6. MODAFINIL [Concomitant]
     Dates: start: 20130606
  7. CITALOPRAM [Concomitant]
     Dates: start: 20130529
  8. VENTOLIN HFA [Concomitant]
     Dates: start: 20130401
  9. LEVOTHYROXINE [Concomitant]
     Dates: start: 20130401
  10. GABAPENTIN [Concomitant]
     Dates: start: 20130327
  11. PREDNISONE [Concomitant]
  12. SINGULAIR [Concomitant]
  13. DETROL LA [Concomitant]
  14. OXYBUTYNIN ER [Concomitant]

REACTIONS (1)
  - Abortion spontaneous [Unknown]
